FAERS Safety Report 10309509 (Version 1)
Quarter: 2014Q3

REPORT INFORMATION
  Report Type: Spontaneous
  Country: IT (occurrence: IT)
  Receive Date: 20140717
  Receipt Date: 20140717
  Transmission Date: 20150326
  Serious: Yes (Other)
  Sender: FDA-Public Use
  Company Number: IT-MYLANLABS-2014S1016329

PATIENT
  Age: 47 Year
  Sex: Female

DRUGS (4)
  1. THIAMAZOLE [Interacting]
     Active Substance: METHIMAZOLE
     Indication: HYPERTHYROIDISM
     Dosage: 15 MG/DAY
     Route: 065
  2. PEGINTERFERON ALFA-2A [Suspect]
     Active Substance: PEGINTERFERON ALFA-2A
     Indication: CHRONIC HEPATITIS C
     Dosage: 180 MCG/WEEK
     Route: 065
  3. RIBAVIRIN. [Interacting]
     Active Substance: RIBAVIRIN
     Indication: CHRONIC HEPATITIS C
     Dosage: 1000 MG/DAY
     Route: 065
  4. CARVEDILOL. [Concomitant]
     Active Substance: CARVEDILOL
     Indication: HYPERTHYROIDISM
     Route: 065

REACTIONS (3)
  - Drug interaction [Recovering/Resolving]
  - Agranulocytosis [Recovering/Resolving]
  - Hyperthyroidism [Recovering/Resolving]
